FAERS Safety Report 16410395 (Version 3)
Quarter: 2019Q3

REPORT INFORMATION
  Report Type: Spontaneous
  Country: US (occurrence: US)
  Receive Date: 20190610
  Receipt Date: 20190723
  Transmission Date: 20191004
  Serious: Yes (Other)
  Sender: FDA-Public Use
  Company Number: US-GW PHARMA-201906USGW1813

PATIENT

DRUGS (13)
  1. EPIDIOLEX [Suspect]
     Active Substance: CANNABIDIOL
     Indication: FOCAL DYSCOGNITIVE SEIZURES
  2. LEVETIRACETAM. [Concomitant]
     Active Substance: LEVETIRACETAM
     Indication: FOCAL DYSCOGNITIVE SEIZURES
  3. LEVETIRACETAM. [Concomitant]
     Active Substance: LEVETIRACETAM
     Indication: PARTIAL SEIZURES
     Dosage: 3 MILLILITER, TID
     Route: 048
  4. LEVETIRACETAM. [Concomitant]
     Active Substance: LEVETIRACETAM
     Indication: PARTIAL SEIZURES
  5. DEPAKENE [VALPROATE SODIUM] [Concomitant]
     Indication: EPILEPSY
  6. EPIDIOLEX [Suspect]
     Active Substance: CANNABIDIOL
     Indication: PARTIAL SEIZURES
     Dosage: 120 MILLIGRAM, BID
     Route: 048
     Dates: start: 20190321
  7. DEPAKENE [VALPROATE SODIUM] [Concomitant]
     Indication: PARTIAL SEIZURES
  8. DEPAKENE [VALPROATE SODIUM] [Concomitant]
     Indication: FOCAL DYSCOGNITIVE SEIZURES
     Dosage: 2 MILLILITER, TID
     Route: 048
  9. DEPAKENE [VALPROATE SODIUM] [Concomitant]
     Indication: PARTIAL SEIZURES
  10. CANNABIDIOL [Concomitant]
     Active Substance: CANNABIDIOL
     Indication: SEIZURE
     Dosage: UNK
     Route: 065
  11. EPIDIOLEX [Suspect]
     Active Substance: CANNABIDIOL
     Indication: EPILEPSY
  12. EPIDIOLEX [Suspect]
     Active Substance: CANNABIDIOL
     Indication: PARTIAL SEIZURES
  13. LEVETIRACETAM. [Concomitant]
     Active Substance: LEVETIRACETAM
     Indication: EPILEPSY

REACTIONS (1)
  - Seizure [Not Recovered/Not Resolved]

NARRATIVE: CASE EVENT DATE: 20190602
